FAERS Safety Report 9001101 (Version 3)
Quarter: 2013Q1

REPORT INFORMATION
  Report Type: Spontaneous
  Country: US (occurrence: US)
  Receive Date: 20130107
  Receipt Date: 20130207
  Transmission Date: 20140127
  Serious: No
  Sender: FDA-Public Use
  Company Number: US-009507513-1301USA001955

PATIENT
  Age: 55 Year
  Sex: Female
  Weight: 79.37 kg

DRUGS (7)
  1. VICTRELIS [Suspect]
     Indication: HEPATITIS C
     Dosage: 4 CAPSULES , TID,
     Route: 048
  2. RIBASPHERE [Suspect]
     Indication: HEPATITIS C
  3. PEGASYS [Suspect]
     Indication: HEPATITIS C
     Dosage: 180 MICROGRAM, QW
     Route: 058
  4. TOPROL XL TABLETS [Concomitant]
  5. XANAX [Concomitant]
  6. TYLENOL [Concomitant]
     Dosage: UNK, Q8H
  7. PROCRIT [Concomitant]
     Dosage: 40000/ML

REACTIONS (4)
  - Rash pruritic [Unknown]
  - Rash erythematous [Unknown]
  - Dysgeusia [Unknown]
  - Red blood cell count decreased [Unknown]
